FAERS Safety Report 24408346 (Version 3)
Quarter: 2024Q4

REPORT INFORMATION
  Report Type: Spontaneous
  Country: JP (occurrence: JP)
  Receive Date: 20241007
  Receipt Date: 20241115
  Transmission Date: 20250115
  Serious: Yes (Hospitalization, Other)
  Sender: GLAXOSMITHKLINE
  Company Number: JP-GSK-JP2024JPN120627

PATIENT

DRUGS (29)
  1. VALTREX [Suspect]
     Active Substance: VALACYCLOVIR HYDROCHLORIDE
     Indication: Varicella
     Dosage: UNK
     Dates: start: 20231128
  2. ZOVIRAX [Suspect]
     Active Substance: ACYCLOVIR
     Indication: Disseminated varicella
     Dosage: 500 MG, TID
     Route: 042
     Dates: start: 20231129, end: 20231212
  3. ZOVIRAX [Suspect]
     Active Substance: ACYCLOVIR
     Indication: Varicella
  4. PREDNISOLONE [Suspect]
     Active Substance: PREDNISOLONE
     Indication: Central nervous system lupus
     Dosage: 50 MG, QD
     Dates: start: 202202
  5. PREDNISOLONE [Suspect]
     Active Substance: PREDNISOLONE
     Indication: Systemic lupus erythematosus
     Dosage: 5 MG, QD
  6. PREDNISOLONE [Suspect]
     Active Substance: PREDNISOLONE
     Indication: Neuropsychological symptoms
  7. PREDNISOLONE [Suspect]
     Active Substance: PREDNISOLONE
     Indication: Serositis
  8. PREDNISOLONE [Suspect]
     Active Substance: PREDNISOLONE
     Indication: Lupus nephritis
  9. PREDNISOLONE [Suspect]
     Active Substance: PREDNISOLONE
     Indication: General symptom
  10. CYCLOPHOSPHAMIDE [Suspect]
     Active Substance: CYCLOPHOSPHAMIDE
     Indication: Central nervous system lupus
     Dosage: UNK
     Dates: start: 202202
  11. CYCLOPHOSPHAMIDE [Suspect]
     Active Substance: CYCLOPHOSPHAMIDE
     Indication: Systemic lupus erythematosus
  12. CYCLOPHOSPHAMIDE [Suspect]
     Active Substance: CYCLOPHOSPHAMIDE
     Indication: Neuropsychological symptoms
  13. CYCLOPHOSPHAMIDE [Suspect]
     Active Substance: CYCLOPHOSPHAMIDE
     Indication: Serositis
  14. CYCLOPHOSPHAMIDE [Suspect]
     Active Substance: CYCLOPHOSPHAMIDE
     Indication: Lupus nephritis
  15. CYCLOPHOSPHAMIDE [Suspect]
     Active Substance: CYCLOPHOSPHAMIDE
     Indication: General symptom
  16. MYCOPHENOLATE MOFETIL [Suspect]
     Active Substance: MYCOPHENOLATE MOFETIL
     Indication: Central nervous system lupus
     Dosage: UNK
     Dates: start: 202204
  17. MYCOPHENOLATE MOFETIL [Suspect]
     Active Substance: MYCOPHENOLATE MOFETIL
     Indication: Systemic lupus erythematosus
     Dosage: 2000 MG, QD
  18. MYCOPHENOLATE MOFETIL [Suspect]
     Active Substance: MYCOPHENOLATE MOFETIL
     Indication: Neuropsychological symptoms
  19. MYCOPHENOLATE MOFETIL [Suspect]
     Active Substance: MYCOPHENOLATE MOFETIL
     Indication: Serositis
  20. MYCOPHENOLATE MOFETIL [Suspect]
     Active Substance: MYCOPHENOLATE MOFETIL
     Indication: Lupus nephritis
  21. MYCOPHENOLATE MOFETIL [Suspect]
     Active Substance: MYCOPHENOLATE MOFETIL
     Indication: General symptom
  22. ANIFROLUMAB [Suspect]
     Active Substance: ANIFROLUMAB
     Indication: Central nervous system lupus
     Dosage: 300 MG, Q4W
     Dates: start: 202301
  23. HYDROXYCHLOROQUINE SULFATE [Suspect]
     Active Substance: HYDROXYCHLOROQUINE SULFATE
     Indication: Systemic lupus erythematosus
     Dosage: 200 MG, QD
     Dates: start: 202203
  24. HYDROXYCHLOROQUINE SULFATE [Suspect]
     Active Substance: HYDROXYCHLOROQUINE SULFATE
     Indication: Neuropsychological symptoms
  25. HYDROXYCHLOROQUINE SULFATE [Suspect]
     Active Substance: HYDROXYCHLOROQUINE SULFATE
     Indication: Serositis
  26. HYDROXYCHLOROQUINE SULFATE [Suspect]
     Active Substance: HYDROXYCHLOROQUINE SULFATE
     Indication: Lupus nephritis
  27. HYDROXYCHLOROQUINE SULFATE [Suspect]
     Active Substance: HYDROXYCHLOROQUINE SULFATE
     Indication: General symptom
  28. PREDONINE [Concomitant]
     Active Substance: PREDNISOLONE
     Indication: Systemic lupus erythematosus
     Dosage: 10 MG, QD
     Route: 041
     Dates: start: 20231129, end: 20231204
  29. OMEPRAZOLE [Concomitant]
     Active Substance: OMEPRAZOLE
     Indication: Chemotherapy side effect prophylaxis
     Dosage: 20 MG, BID
     Dates: start: 20231129, end: 20231204

REACTIONS (13)
  - Disseminated varicella [Unknown]
  - Movement disorder [Unknown]
  - Back pain [Unknown]
  - Nausea [Unknown]
  - Blister [Unknown]
  - Condition aggravated [Unknown]
  - Hepatic function abnormal [Recovered/Resolved]
  - Coagulopathy [Recovered/Resolved]
  - Liver disorder [Recovered/Resolved]
  - Pain [Unknown]
  - Incorrect product administration duration [Unknown]
  - Prescribed overdose [Unknown]
  - Off label use [Unknown]

NARRATIVE: CASE EVENT DATE: 20231128
